FAERS Safety Report 11506068 (Version 1)
Quarter: 2015Q3

REPORT INFORMATION
  Report Type: Spontaneous
  Country: US (occurrence: US)
  Receive Date: 20150915
  Receipt Date: 20150915
  Transmission Date: 20151125
  Serious: No
  Sender: FDA-Public Use
  Company Number: US-ROCHE-773517

PATIENT
  Age: 53 Year
  Sex: Male
  Weight: 64.4 kg

DRUGS (4)
  1. PEGASYS [Suspect]
     Active Substance: PEGINTERFERON ALFA-2A
     Indication: HEPATITIS C
     Dosage: FORM: PRE-FILLED SYRINGE, OTHER INDICATION CHRONIC HEPATITIS B
     Route: 058
  2. VIREAD [Concomitant]
     Active Substance: TENOFOVIR DISOPROXIL FUMARATE
     Indication: HEPATITIS B
     Route: 065
  3. RIBAVIRIN. [Suspect]
     Active Substance: RIBAVIRIN
     Indication: HEPATITIS C
     Dosage: DIVIDED DOSES, OTHER INDICATION CHRONIC HEPATITIS B
     Route: 048
  4. DESYREL [Concomitant]
     Active Substance: TRAZODONE HYDROCHLORIDE
     Indication: INSOMNIA
     Route: 065

REACTIONS (18)
  - Insomnia [Unknown]
  - Influenza like illness [Unknown]
  - Migraine [Recovering/Resolving]
  - Fatigue [Not Recovered/Not Resolved]
  - Decreased appetite [Unknown]
  - Confusional state [Unknown]
  - Photophobia [Not Recovered/Not Resolved]
  - Nausea [Recovering/Resolving]
  - Memory impairment [Unknown]
  - Vomiting [Recovering/Resolving]
  - Anaemia [Unknown]
  - Diarrhoea [Recovering/Resolving]
  - Pain [Not Recovered/Not Resolved]
  - Dysgeusia [Unknown]
  - Pyrexia [Recovering/Resolving]
  - Headache [Unknown]
  - Chills [Recovering/Resolving]
  - Weight decreased [Not Recovered/Not Resolved]

NARRATIVE: CASE EVENT DATE: 20110423
